FAERS Safety Report 10196878 (Version 1)
Quarter: 2014Q2

REPORT INFORMATION
  Report Type: Spontaneous
  Country: JP (occurrence: JP)
  Receive Date: 20140527
  Receipt Date: 20140527
  Transmission Date: 20141212
  Serious: Yes (Other)
  Sender: FDA-Public Use
  Company Number: JP-BAYER-2014-073057

PATIENT
  Age: 37 Year
  Sex: Male
  Weight: 71 kg

DRUGS (5)
  1. NEXAVAR [Suspect]
     Indication: HEPATOCELLULAR CARCINOMA
     Dosage: DAILY DOSE 800 MG
     Route: 048
  2. NEXAVAR [Suspect]
     Indication: HEPATOCELLULAR CARCINOMA
     Dosage: DAILY DOSE 800 MG
     Route: 048
  3. CISPLATIN [Concomitant]
     Dosage: UNK
     Route: 013
  4. 5-FU [Concomitant]
     Dosage: UNK
  5. INTERFERON ALFA [Concomitant]
     Dosage: UNK

REACTIONS (3)
  - Tumour lysis syndrome [Recovered/Resolved]
  - Renal failure [Recovered/Resolved]
  - Erythema multiforme [Recovered/Resolved]
